FAERS Safety Report 10070896 (Version 2)
Quarter: 2014Q2

REPORT INFORMATION
  Report Type: Spontaneous
  Country: JP (occurrence: JP)
  Receive Date: 20140410
  Receipt Date: 20140627
  Transmission Date: 20141212
  Serious: Yes (Death)
  Sender: FDA-Public Use
  Company Number: JP-TEVA-474582ISR

PATIENT
  Sex: Female
  Weight: 40 kg

DRUGS (5)
  1. E-FEN BUCCAL TABLET [Suspect]
     Indication: BREAKTHROUGH PAIN
     Dosage: 50-200 MCG DAILY
     Route: 002
     Dates: start: 20140220, end: 20140227
  2. E-FEN BUCCAL TABLET [Suspect]
     Dosage: 100-300 MCG DAILY
     Route: 002
     Dates: start: 20140228, end: 20140312
  3. FENTANYL [Concomitant]
     Indication: BREAKTHROUGH PAIN
     Route: 062
     Dates: start: 20140219, end: 20140222
  4. FENTANYL [Concomitant]
     Route: 062
     Dates: start: 20140223, end: 20140310
  5. FENTANYL [Concomitant]
     Route: 062
     Dates: start: 20140311, end: 20140313

REACTIONS (1)
  - Bladder cancer [Fatal]
